FAERS Safety Report 8130149-1 (Version None)
Quarter: 2012Q1

REPORT INFORMATION
  Report Type: 
  Country: None (occurrence: None)
  Receive Date: 20120210
  Receipt Date: 20120206
  Transmission Date: 20120608
  Serious: Yes (Death)
  Sender: FDA-Public Use
  Company Number: CA-B.I. PHARMACEUTICALS,INC./RIDGEFIELD-2012-CN-00173CN

PATIENT
  Age: 57 Year
  Sex: Female
  Weight: 83 kg

DRUGS (13)
  1. FERROUS SULFATE TAB [Concomitant]
  2. LIPIDIL [Concomitant]
  3. ZOPICLONE [Concomitant]
  4. FLUTICASONE PROPIONATE [Concomitant]
     Route: 055
  5. NORVIR [Suspect]
     Dosage: 200 MG
     Route: 048
  6. GLYBURIDE [Concomitant]
  7. RAMIPRIL [Concomitant]
  8. ALBUTEROL SULFATE AUTOHALER [Concomitant]
     Route: 055
  9. METFORMIN HCL [Concomitant]
  10. TENOFOVIR [Concomitant]
     Route: 048
  11. TIPRANAVIR + RITONAVIR CO-ADMIN [Suspect]
     Dosage: 1000 MG
     Route: 048
  12. LAMIVUDINE (EPIVIR HBV) [Concomitant]
  13. BACTRIM [Concomitant]

REACTIONS (1)
  - DEATH [None]
